FAERS Safety Report 8623229-5 (Version None)
Quarter: 2012Q3

REPORT INFORMATION
  Report Type: 
  Country: None (occurrence: None)
  Receive Date: 20120827
  Receipt Date: 20120817
  Transmission Date: 20120928
  Serious: Yes (Hospitalization)
  Sender: FDA-Public Use
  Company Number: CA-JNJFOC-20120106929

PATIENT
  Sex: Male
  Weight: 75 kg

DRUGS (6)
  1. SOLU-CORTEF [Concomitant]
     Indication: PREMEDICATION
     Route: 042
     Dates: start: 20111017
  2. ALTACE [Concomitant]
     Route: 065
  3. TYLENOL [Concomitant]
     Indication: PREMEDICATION
     Route: 048
     Dates: start: 20111017
  4. METOPROLOL TARTRATE [Concomitant]
     Route: 065
  5. REMICADE [Suspect]
     Indication: CROHN'S DISEASE
     Route: 042
     Dates: start: 20060101
  6. PLAVIX [Concomitant]
     Route: 065

REACTIONS (4)
  - ASTHENIA [None]
  - SYNCOPE [None]
  - HERPES ZOSTER [None]
  - BLOOD PRESSURE INCREASED [None]
